FAERS Safety Report 6702117-5 (Version None)
Quarter: 2010Q2

REPORT INFORMATION
  Report Type: 
  Country: None (occurrence: None)
  Receive Date: 20100429
  Receipt Date: 20100421
  Transmission Date: 20101027
  Serious: Yes (Other)
  Sender: FDA-Public Use
  Company Number: US-SANOFI-AVENTIS-2010SA023297

PATIENT
  Age: 62 Year
  Sex: Female

DRUGS (4)
  1. LANTUS [Suspect]
     Indication: TYPE 2 DIABETES MELLITUS
     Dosage: DOSE:20 UNIT(S)
     Route: 058
     Dates: end: 20060101
  2. LANTUS [Suspect]
     Dosage: DOSE:20 UNIT(S)
     Route: 058
     Dates: start: 20100101
  3. OPTICLICK [Suspect]
     Indication: TYPE 2 DIABETES MELLITUS
  4. OPTICLICK [Suspect]
     Dates: start: 20100101

REACTIONS (1)
  - NEOPLASM MALIGNANT [None]
